FAERS Safety Report 24155016 (Version 1)
Quarter: 2024Q3

REPORT INFORMATION
  Report Type: Report from Study
  Country: US (occurrence: US)
  Receive Date: 20240731
  Receipt Date: 20240731
  Transmission Date: 20241016
  Serious: No
  Sender: ACADIA PHARMACEUTICALS
  Company Number: US-ACADIA PHARMACEUTICALS INC.-ACA-2024-PIM-003468

PATIENT
  Sex: Female

DRUGS (13)
  1. NUPLAZID [Suspect]
     Active Substance: PIMAVANSERIN TARTRATE
     Indication: Parkinson^s disease
     Dosage: 34 MILLIGRAM, QD
     Route: 048
     Dates: start: 20201003
  2. ACIDOPHILUS [Concomitant]
     Active Substance: LACTOBACILLUS ACIDOPHILUS
  3. CALCIUM [Concomitant]
     Active Substance: CALCIUM
     Dosage: 600 MILLIGRAM
  4. CARBIDOPA LEVODOPA [Concomitant]
     Active Substance: CARBIDOPA\LEVODOPA
     Dosage: 25-100 MG
  5. ENTACAPONE [Concomitant]
     Active Substance: ENTACAPONE
     Dosage: 200 MILLIGRAM
  6. MAGNESIUM [Concomitant]
     Active Substance: MAGNESIUM
     Dosage: 250 MILLIGRAM
  7. OCUVITE [ASCORBIC ACID;RETINOL;TOCOPHEROL] [Concomitant]
     Dosage: ADULT
  8. OXYBUTYNIN [Concomitant]
     Active Substance: OXYBUTYNIN\OXYBUTYNIN CHLORIDE
     Dosage: 5 MILLIGRAM
  9. PECTIN [Concomitant]
     Active Substance: PECTIN
  10. VITAMIN B-1 [THIAMINE HYDROCHLORIDE] [Concomitant]
     Dosage: 100 MILLIGRAM
  11. VITAMIN B12 [Concomitant]
     Active Substance: CYANOCOBALAMIN
     Dosage: 100 MICROGRAM
  12. VITAMIN D3 [Concomitant]
     Active Substance: CHOLECALCIFEROL
     Dosage: 400 UNIT
  13. ZINC [Concomitant]
     Active Substance: ZINC
     Dosage: 50 MILLIGRAM

REACTIONS (1)
  - Condition aggravated [Unknown]
